FAERS Safety Report 5910175-0 (Version None)
Quarter: 2008Q4

REPORT INFORMATION
  Report Type: 
  Country: None (occurrence: None)
  Receive Date: 20081007
  Receipt Date: 20070925
  Transmission Date: 20090506
  Serious: No
  Sender: FDA-Public Use
  Company Number: US-ASTRAZENECA-2007UW22481

PATIENT
  Age: 70 Year
  Sex: Female
  Weight: 86.6 kg

DRUGS (9)
  1. ARIMIDEX [Suspect]
     Indication: BREAST CANCER
     Route: 048
     Dates: start: 20070601
  2. METFORMIN HCL [Concomitant]
  3. JANUVIA [Concomitant]
  4. TRICLOR [Concomitant]
  5. ASPIRIN [Concomitant]
  6. DIOVAN MULTIVITAMINS [Concomitant]
  7. LECITHIN [Concomitant]
  8. GLUCOSAMINE [Concomitant]
  9. CINNAMON [Concomitant]

REACTIONS (1)
  - BLOOD GLUCOSE INCREASED [None]
